FAERS Safety Report 7108989-7 (Version None)
Quarter: 2010Q4

REPORT INFORMATION
  Report Type: 
  Country: None (occurrence: None)
  Receive Date: 20101112
  Receipt Date: 20101103
  Transmission Date: 20110411
  Serious: Yes (Hospitalization)
  Sender: FDA-Public Use
  Company Number: 2010124536

PATIENT
  Age: 72 Year
  Sex: Female

DRUGS (4)
  1. DALTEPARIN SODIUM [Suspect]
     Indication: LUNG NEOPLASM MALIGNANT
     Dates: start: 20100917
  2. DALTEPARIN SODIUM [Suspect]
     Indication: LUNG NEOPLASM MALIGNANT
     Dates: start: 20100929
  3. ACETAMINOPHEN [Concomitant]
  4. AMITRIPTYLINE HYDROCHLORIDE [Concomitant]

REACTIONS (5)
  - CONSTIPATION [None]
  - HEADACHE [None]
  - MUSCULOSKELETAL CHEST PAIN [None]
  - NAUSEA [None]
  - VOMITING [None]
